FAERS Safety Report 4336198-3 (Version None)
Quarter: 2004Q2

REPORT INFORMATION
  Report Type: 
  Country: None (occurrence: None)
  Receive Date: 20040407
  Receipt Date: 20020709
  Transmission Date: 20050107
  Serious: Yes (Hospitalization)
  Sender: FDA-Public Use
  Company Number: D01200200185

PATIENT
  Age: 82 Year
  Sex: Male

DRUGS (7)
  1. ALFUZOSIN - TABLET - 10 MG [Suspect]
     Indication: URINARY RETENTION
     Dosage: 10 MG OD ORAL
     Route: 048
     Dates: start: 20020225, end: 20020626
  2. PROBENECID [Concomitant]
  3. CLARITIN [Concomitant]
  4. ZOCOR [Concomitant]
  5. TRENTAL [Concomitant]
  6. ASPIRIN [Concomitant]
  7. CIPRO [Concomitant]

REACTIONS (6)
  - ACUTE MYOCARDIAL INFARCTION [None]
  - DISEASE PROGRESSION [None]
  - DRUG INEFFECTIVE [None]
  - IRON DEFICIENCY ANAEMIA [None]
  - PEPTIC ULCER HAEMORRHAGE [None]
  - URINARY RETENTION [None]
